FAERS Safety Report 25003623 (Version 2)
Quarter: 2025Q2

REPORT INFORMATION
  Report Type: Spontaneous
  Country: US (occurrence: US)
  Receive Date: 20250224
  Receipt Date: 20250513
  Transmission Date: 20250717
  Serious: Yes (Other)
  Sender: BAYER HEALTHCARE LLC
  Company Number: US-BAYER-2025A021113

PATIENT
  Age: 93 Year
  Sex: Female

DRUGS (5)
  1. ALKA-SELTZER ORIGINAL FLAVOR [Suspect]
     Active Substance: ASPIRIN
     Indication: Gastrointestinal disorder
     Route: 048
     Dates: start: 202412, end: 20250203
  2. ALKA-SELTZER ORIGINAL FLAVOR [Suspect]
     Active Substance: ASPIRIN
     Indication: Abdominal discomfort
  3. ALKA-SELTZER ORIGINAL FLAVOR [Suspect]
     Active Substance: ASPIRIN
     Indication: Dyspepsia
  4. PRADAXA [Suspect]
     Active Substance: DABIGATRAN ETEXILATE MESYLATE
     Indication: Product used for unknown indication
     Route: 048
  5. ANTITHROMBIN III HUMAN [Suspect]
     Active Substance: ANTITHROMBIN III HUMAN

REACTIONS (6)
  - Intestinal haemorrhage [Recovering/Resolving]
  - Internal haemorrhage [None]
  - Faeces discoloured [Recovering/Resolving]
  - Anaemia [None]
  - Full blood count decreased [None]
  - Fatigue [None]

NARRATIVE: CASE EVENT DATE: 20250101
